FAERS Safety Report 7763068-0 (Version None)
Quarter: 2011Q3

REPORT INFORMATION
  Report Type: 
  Country: None (occurrence: None)
  Receive Date: 20110920
  Receipt Date: 20110913
  Transmission Date: 20111222
  Serious: Yes (Death, Other)
  Sender: FDA-Public Use
  Company Number: JP-PFIZER INC-2011203275

PATIENT
  Age: 86 Year
  Sex: Female

DRUGS (1)
  1. ZOSYN [Suspect]
     Indication: PNEUMONIA ASPIRATION
     Dosage: 4.5 G, 3X/DAY
     Route: 041
     Dates: start: 20110714, end: 20110721

REACTIONS (2)
  - SEPSIS [None]
  - RENAL TUBULAR NECROSIS [None]
